FAERS Safety Report 6455658-2 (Version None)
Quarter: 2009Q4

REPORT INFORMATION
  Report Type: 
  Country: None (occurrence: None)
  Receive Date: 20091125
  Receipt Date: 20090911
  Transmission Date: 20100525
  Serious: No
  Sender: FDA-Public Use
  Company Number: US-ABBOTT-09P-163-0597211-00

PATIENT
  Sex: Female
  Weight: 63.56 kg

DRUGS (12)
  1. SIMCOR [Suspect]
     Indication: BLOOD CHOLESTEROL INCREASED
     Dosage: 2 - 500/20 MG TAB AT BEDTIME
     Route: 048
     Dates: start: 20090901
  2. ASPIRIN [Concomitant]
     Indication: DRUG USE FOR UNKNOWN INDICATION
  3. RITALIN [Concomitant]
     Indication: DRUG USE FOR UNKNOWN INDICATION
  4. ACIPHEX [Concomitant]
     Indication: GASTROOESOPHAGEAL REFLUX DISEASE
  5. ADVAIR DISKUS 100/50 [Concomitant]
     Indication: ASTHMA
     Dosage: 500/50 MILLIGRAM TWICE A DAY AS NEEDED
  6. ARICEPT [Concomitant]
     Indication: DEMENTIA ALZHEIMER'S TYPE
  7. PREMARIN [Concomitant]
     Indication: OESTROGEN REPLACEMENT THERAPY
  8. PAXIL [Concomitant]
     Indication: DRUG USE FOR UNKNOWN INDICATION
  9. DIAZIDE [Concomitant]
     Indication: DRUG USE FOR UNKNOWN INDICATION
     Dosage: 1 - 37.5/25 MG TAB DAILY
  10. UNKNOWN ASTHMA INHALER [Concomitant]
     Indication: DRUG USE FOR UNKNOWN INDICATION
  11. SULAR [Concomitant]
     Indication: HYPERTENSION
  12. PLAVIX [Concomitant]
     Indication: BLOOD CHOLESTEROL INCREASED

REACTIONS (2)
  - DRY SKIN [None]
  - PRURITUS [None]
